FAERS Safety Report 18326712 (Version 1)
Quarter: 2020Q3

REPORT INFORMATION
  Report Type: Spontaneous
  Country: FR (occurrence: FR)
  Receive Date: 20200930
  Receipt Date: 20200930
  Transmission Date: 20201103
  Serious: Yes (Hospitalization)
  Sender: FDA-Public Use
  Company Number: FR-SUN PHARMACEUTICAL INDUSTRIES LTD-2020RR-262054

PATIENT
  Age: 85 Year
  Sex: Female
  Weight: 94 kg

DRUGS (5)
  1. MIDAZOLAM. [Suspect]
     Active Substance: MIDAZOLAM
     Indication: SEDATION
     Dosage: 6 MICROGRAM, 1DOSE/1HOUR
     Route: 042
     Dates: start: 20200814, end: 20200815
  2. PANTOPRAZOLE [Suspect]
     Active Substance: PANTOPRAZOLE
     Indication: PROPHYLAXIS
     Dosage: 40 MILLIGRAM, DAILY
     Route: 042
     Dates: start: 20200814, end: 20200814
  3. TAZOCILLINE 4 G/500 MG, POUDRE POUR SOLUTION POUR PERFUSION [Suspect]
     Active Substance: PIPERACILLIN SODIUM\TAZOBACTAM SODIUM
     Indication: BACTERAEMIA
     Dosage: 3 DOSAGE FORM, DAILY
     Route: 042
     Dates: start: 20200814, end: 20200819
  4. SUFENTANIL [Suspect]
     Active Substance: SUFENTANIL
     Indication: SEDATION
     Dosage: 20 MICROGRAM, 1DOSE/1HOUR
     Route: 042
     Dates: start: 20200814, end: 20200819
  5. ZYVOXID 600 MG, COMPRIME PELLICULE [Suspect]
     Active Substance: LINEZOLID
     Indication: BACTERAEMIA
     Dosage: 2 DOSAGE FORM, DAILY
     Route: 042
     Dates: start: 20200814, end: 20200819

REACTIONS (2)
  - Delayed recovery from anaesthesia [Recovered/Resolved]
  - Encephalopathy [Recovered/Resolved]

NARRATIVE: CASE EVENT DATE: 20200816
